FAERS Safety Report 7427672-1 (Version None)
Quarter: 2011Q2

REPORT INFORMATION
  Report Type: 
  Country: None (occurrence: None)
  Receive Date: 20110411
  Receipt Date: 20110328
  Transmission Date: 20111010
  Serious: Yes (Other)
  Sender: FDA-Public Use
  Company Number: 2011001539

PATIENT
  Age: 54 Year
  Sex: Female

DRUGS (2)
  1. ERLOTINIB (ERLOTINIB) (TABLET) (ERLOTINIB) [Suspect]
     Indication: THYROID CANCER METASTATIC
     Dosage: (MG) , ORAL
     Route: 048
     Dates: start: 20050101
  2. GEFITINIB [Suspect]
     Indication: THYROID CANCER METASTATIC
     Dates: start: 20050101

REACTIONS (2)
  - POST GASTRIC SURGERY SYNDROME [None]
  - CARDIOMYOPATHY [None]
